FAERS Safety Report 13549745 (Version 1)
Quarter: 2017Q2

REPORT INFORMATION
  Report Type: Spontaneous
  Country: RO (occurrence: RO)
  Receive Date: 20170516
  Receipt Date: 20170516
  Transmission Date: 20170830
  Serious: Yes (Other)
  Sender: FDA-Public Use
  Company Number: RO-STRIDES ARCOLAB LIMITED-2017SP007733

PATIENT

DRUGS (2)
  1. LOPINAVIR W/RITONAVIR [Suspect]
     Active Substance: LOPINAVIR\RITONAVIR
     Indication: HIV INFECTION
     Dosage: UNK, UNKNOWN
     Route: 065
     Dates: start: 201411, end: 201505
  2. LAMIVUDINE AND ZIDOVUDINE TABLETS [Suspect]
     Active Substance: LAMIVUDINE\ZIDOVUDINE
     Indication: HIV INFECTION
     Dosage: UNK
     Route: 065
     Dates: start: 201411, end: 201505

REACTIONS (4)
  - Neutropenia [Unknown]
  - Anaemia [Unknown]
  - Macrocytosis [Unknown]
  - Leukopenia [Unknown]

NARRATIVE: CASE EVENT DATE: 201505
